FAERS Safety Report 14730045 (Version 1)
Quarter: 2018Q2

REPORT INFORMATION
  Report Type: Spontaneous
  Country: US (occurrence: US)
  Receive Date: 20180402
  Receipt Date: 20180402
  Transmission Date: 20180711
  Serious: Yes (Other)
  Sender: FDA-Public Use
  Company Number: None

PATIENT
  Age: 65 Year
  Sex: Female

DRUGS (1)
  1. CAPECITABINE 500MG [Suspect]
     Active Substance: CAPECITABINE
     Dosage: 1500MG  MON-FR DURING RADIATION BID ORAL
     Route: 048
     Dates: start: 20180201

REACTIONS (3)
  - Impaired driving ability [None]
  - Loss of personal independence in daily activities [None]
  - Fatigue [None]

NARRATIVE: CASE EVENT DATE: 201803
